FAERS Safety Report 25944536 (Version 2)
Quarter: 2025Q4

REPORT INFORMATION
  Report Type: Spontaneous
  Country: MY (occurrence: MY)
  Receive Date: 20251021
  Receipt Date: 20251117
  Transmission Date: 20260117
  Serious: Yes (Other)
  Sender: ELI LILLY AND COMPANY
  Company Number: MY-ELI_LILLY_AND_COMPANY-MY202510013275

PATIENT
  Age: 38 Year
  Sex: Female
  Weight: 68 kg

DRUGS (4)
  1. MOUNJARO [Suspect]
     Active Substance: TIRZEPATIDE
     Indication: Weight decreased
     Dosage: 2.5 MG, WEEKLY (1/W)
     Route: 058
     Dates: start: 20251024
  2. MOUNJARO [Suspect]
     Active Substance: TIRZEPATIDE
     Indication: Weight decreased
     Dosage: 2.5 MG, WEEKLY (1/W)
     Route: 058
     Dates: start: 20251024
  3. CELEBREX [Concomitant]
     Active Substance: CELECOXIB
     Indication: Neuralgia
     Dosage: 200 MG, DAILY
  4. LYRICA [Concomitant]
     Active Substance: PREGABALIN
     Indication: Neuralgia
     Dosage: 75 MG, DAILY (AT NIGHT)

REACTIONS (5)
  - Weight increased [Unknown]
  - Pain [Recovering/Resolving]
  - Somnolence [Unknown]
  - Lethargy [Recovering/Resolving]
  - Arthralgia [Recovering/Resolving]
